FAERS Safety Report 5020823-8 (Version None)
Quarter: 2006Q2

REPORT INFORMATION
  Report Type: 
  Country: None (occurrence: None)
  Receive Date: 20060608
  Receipt Date: 20060602
  Transmission Date: 20061013
  Serious: Yes (Other)
  Sender: FDA-Public Use
  Company Number: US-BRISTOL-MYERS SQUIBB COMPANY-13400536

PATIENT
  Sex: Female
  Weight: 110 kg

DRUGS (5)
  1. CARBOPLATIN [Suspect]
     Indication: OVARIAN CANCER
     Route: 042
     Dates: start: 20060601, end: 20060601
  2. DECADRON [Concomitant]
     Indication: PREMEDICATION
     Route: 042
  3. KYTRIL [Concomitant]
     Indication: PREMEDICATION
     Route: 042
  4. VITAMINS [Concomitant]
  5. DULCOLAX [Concomitant]

REACTIONS (7)
  - BLOOD PRESSURE DECREASED [None]
  - COMA [None]
  - DYSPNOEA [None]
  - GENITAL BURNING SENSATION [None]
  - LOSS OF CONSCIOUSNESS [None]
  - PULSE ABNORMAL [None]
  - URINARY INCONTINENCE [None]
